FAERS Safety Report 6981590-1 (Version None)
Quarter: 2010Q3

REPORT INFORMATION
  Report Type: 
  Country: None (occurrence: None)
  Receive Date: 20100914
  Receipt Date: 20100903
  Transmission Date: 20110219
  Serious: Yes (Other)
  Sender: FDA-Public Use
  Company Number: US-AMGEN-QUU436036

PATIENT
  Sex: Male

DRUGS (4)
  1. NPLATE [Suspect]
     Indication: IDIOPATHIC THROMBOCYTOPENIC PURPURA
     Dates: start: 20080701
  2. TENORMIN [Concomitant]
  3. MESTINON [Concomitant]
  4. VITAMIN B-12 [Concomitant]

REACTIONS (1)
  - THERAPEUTIC RESPONSE DECREASED [None]
